FAERS Safety Report 15642485 (Version 1)
Quarter: 2018Q4

REPORT INFORMATION
  Report Type: Spontaneous
  Country: US (occurrence: US)
  Receive Date: 20181121
  Receipt Date: 20181121
  Transmission Date: 20190205
  Serious: No
  Sender: FDA-Public Use
  Company Number: US-009507513-1811USA004390

PATIENT
  Sex: Female

DRUGS (1)
  1. FOLLISTIM [Suspect]
     Active Substance: FOLLITROPIN
     Indication: INFERTILITY FEMALE
     Dosage: 74-450 UNITS DAILY
     Route: 058
     Dates: start: 20180926

REACTIONS (3)
  - Infusion site swelling [Unknown]
  - Injection site pruritus [Unknown]
  - Injection site erythema [Unknown]
